FAERS Safety Report 9655040 (Version 1)
Quarter: 2013Q4

REPORT INFORMATION
  Report Type: Spontaneous
  Country: SE (occurrence: SE)
  Receive Date: 20131029
  Receipt Date: 20131029
  Transmission Date: 20140711
  Serious: Yes (Death, Other)
  Sender: FDA-Public Use
  Company Number: SE-ABBVIE-13P-150-1163049-00

PATIENT
  Age: 14 Year
  Sex: Male

DRUGS (6)
  1. ERGENYL [Suspect]
     Indication: EPILEPSY
     Route: 048
     Dates: end: 20130820
  2. NEXIUM [Concomitant]
     Indication: PRODUCT USED FOR UNKNOWN INDICATION
  3. FRISIUM [Concomitant]
     Indication: PRODUCT USED FOR UNKNOWN INDICATION
  4. OSPOLOT [Concomitant]
     Indication: PRODUCT USED FOR UNKNOWN INDICATION
  5. ETALPHA [Concomitant]
     Indication: PRODUCT USED FOR UNKNOWN INDICATION
  6. MOVICOL [Concomitant]
     Indication: PRODUCT USED FOR UNKNOWN INDICATION

REACTIONS (7)
  - Multi-organ failure [Fatal]
  - Pancreatitis acute [Fatal]
  - Vomiting [Unknown]
  - Respiratory acidosis [Unknown]
  - Carbon dioxide increased [Unknown]
  - Hypovolaemia [Unknown]
  - Lipase increased [Unknown]
